FAERS Safety Report 4346080-3 (Version None)
Quarter: 2004Q1

REPORT INFORMATION
  Report Type: 
  Country: None (occurrence: None)
  Receive Date: 20040325
  Receipt Date: 20040217
  Transmission Date: 20041129
  Serious: No
  Sender: FDA-Public Use
  Company Number: USA040258625

PATIENT
  Age: 66 Year
  Sex: Female
  Weight: 73 kg

DRUGS (2)
  1. FORTEO [Suspect]
     Indication: BONE DENSITY DECREASED
     Dosage: 20 UG/DAY
     Dates: start: 20030901
  2. UNSPECIFIED ALLERGY PILLS [Concomitant]

REACTIONS (6)
  - ARTHRALGIA [None]
  - HEART RATE INCREASED [None]
  - PAIN [None]
  - PAIN IN EXTREMITY [None]
  - SINUSITIS [None]
  - UPPER RESPIRATORY TRACT INFECTION [None]
